FAERS Safety Report 10229579 (Version 1)
Quarter: 2014Q2

REPORT INFORMATION
  Report Type: Spontaneous
  Country: US (occurrence: None)
  Receive Date: 20140610
  Receipt Date: 20140610
  Transmission Date: 20141212
  Serious: Yes (Death, Hospitalization, Disabling)
  Sender: FDA-Public Use
  Company Number: None

PATIENT
  Age: 78 Year
  Sex: Male
  Weight: 72.58 kg

DRUGS (13)
  1. RECLAS [Suspect]
     Indication: BONE DISORDER
     Route: 042
     Dates: start: 201105, end: 201105
  2. IMURAN [Concomitant]
  3. DILTIAZEM [Concomitant]
  4. PLAQUENT [Concomitant]
  5. PRILOSEC [Concomitant]
  6. PREDNISONE [Concomitant]
  7. TRAMADOL [Concomitant]
  8. FLORADIL [Concomitant]
  9. SPRIPIVAL [Concomitant]
  10. LASIX [Concomitant]
  11. VITAMIN [Concomitant]
  12. VIT D + C [Concomitant]
  13. FISH OIL [Concomitant]

REACTIONS (6)
  - Myalgia [None]
  - Pain in jaw [None]
  - Femoral artery occlusion [None]
  - Iliac artery occlusion [None]
  - Muscle spasms [None]
  - Large intestinal obstruction [None]
